FAERS Safety Report 6373708-9 (Version None)
Quarter: 2009Q3

REPORT INFORMATION
  Report Type: 
  Country: None (occurrence: None)
  Receive Date: 20090924
  Receipt Date: 20090420
  Transmission Date: 20100115
  Serious: No
  Sender: FDA-Public Use
  Company Number: US-ASTRAZENECA-2009UW09939

PATIENT
  Sex: Female

DRUGS (5)
  1. SEROQUEL [Suspect]
     Route: 048
     Dates: start: 19990101
  2. TOPROL-XL [Concomitant]
     Route: 048
  3. CLONOPIN [Concomitant]
  4. HYDROCHLOROTHIAZIDE [Concomitant]
  5. HYDROCODONE [Concomitant]

REACTIONS (5)
  - ASTHENIA [None]
  - BLOOD GLUCOSE ABNORMAL [None]
  - DECREASED APPETITE [None]
  - OEDEMA PERIPHERAL [None]
  - PALLOR [None]
